FAERS Safety Report 12178058 (Version 1)
Quarter: 2016Q1

REPORT INFORMATION
  Report Type: Spontaneous
  Country: DE (occurrence: DE)
  Receive Date: 20160315
  Receipt Date: 20160315
  Transmission Date: 20160526
  Serious: Yes (Other)
  Sender: FDA-Public Use
  Company Number: DE-ACCORD-038818

PATIENT
  Age: 46 Year
  Sex: Female
  Weight: 91 kg

DRUGS (1)
  1. QUETIAPINE ACCORD [Suspect]
     Active Substance: QUETIAPINE
     Indication: PRODUCT USED FOR UNKNOWN INDICATION
     Dosage: PROLONGED RELEASE
     Route: 048
     Dates: start: 20160226, end: 20160229

REACTIONS (9)
  - Flushing [Unknown]
  - Abnormal dreams [Unknown]
  - Rash [Unknown]
  - Gingivitis [Unknown]
  - Dry throat [Unknown]
  - Nasal dryness [Unknown]
  - Hypersensitivity [Unknown]
  - Urticaria [Unknown]
  - Eyelid skin dryness [Unknown]

NARRATIVE: CASE EVENT DATE: 20160229
